FAERS Safety Report 4340700-5 (Version None)
Quarter: 2004Q2

REPORT INFORMATION
  Report Type: 
  Country: None (occurrence: None)
  Receive Date: 20040413
  Receipt Date: 20040331
  Transmission Date: 20050107
  Serious: Yes (Hospitalization)
  Sender: FDA-Public Use
  Company Number: 04P-163-0246390-00

PATIENT
  Age: 48 Year
  Sex: Male
  Weight: 58.5 kg

DRUGS (12)
  1. KALETRA [Suspect]
     Indication: HIV INFECTION
     Dosage: 3 CAPSULES, 2 IN 1 D; SEE IMAGE
  2. TACROLIMUS [Suspect]
     Indication: IMMUNOSUPPRESSION
     Dosage: SEE IMAGE
  3. LAMIVUDINE [Concomitant]
  4. ZIDOVUDINE [Concomitant]
  5. CORTICOSTERIOD [Concomitant]
  6. BACTRIM [Concomitant]
  7. NYSTATIN SUSPENSION (NYSTATIN) [Concomitant]
  8. ACYCLOVIR [Concomitant]
  9. PREDNISONE [Concomitant]
  10. NIZATIDINE [Concomitant]
  11. CEPHALEXIN [Concomitant]
  12. MAGNESIUM OXIDE [Concomitant]

REACTIONS (17)
  - BILE DUCT OBSTRUCTION [None]
  - CYTOMEGALOVIRUS INFECTION [None]
  - DECREASED APPETITE [None]
  - DEHYDRATION [None]
  - DEPRESSION [None]
  - DIARRHOEA [None]
  - DISEASE RECURRENCE [None]
  - DRUG INTERACTION [None]
  - DRUG LEVEL INCREASED [None]
  - HEPATIC FUNCTION ABNORMAL [None]
  - HEPATITIS C VIRUS [None]
  - INSOMNIA [None]
  - MENTAL STATUS CHANGES [None]
  - NEPHROPATHY TOXIC [None]
  - NIGHT SWEATS [None]
  - PAIN [None]
  - TREMOR [None]
